FAERS Safety Report 21343200 (Version 1)
Quarter: 2022Q3

REPORT INFORMATION
  Report Type: Spontaneous
  Country: US (occurrence: None)
  Receive Date: 20220916
  Receipt Date: 20220916
  Transmission Date: 20221027
  Serious: Yes (unspecified)
  Sender: FDA-Public Use
  Company Number: None

PATIENT
  Age: 59 Year
  Sex: Male
  Weight: 70 kg

DRUGS (3)
  1. FLUOROURACIL [Suspect]
     Active Substance: FLUOROURACIL
     Indication: Rectal cancer metastatic
     Route: 042
     Dates: start: 20220526, end: 20220622
  2. FLUOROURACIL [Suspect]
     Active Substance: FLUOROURACIL
     Indication: Metastases to liver
  3. FLUOROURACIL [Suspect]
     Active Substance: FLUOROURACIL
     Indication: Metastases to lung

REACTIONS (14)
  - Encephalopathy [None]
  - Neutropenia [None]
  - Unevaluable event [None]
  - Therapy interrupted [None]
  - Pituitary tumour benign [None]
  - Sciatica [None]
  - Toxicity to various agents [None]
  - Off label use [None]
  - Chest pain [None]
  - Device placement issue [None]
  - Refusal of treatment by patient [None]
  - Pain [None]
  - Leukopenia [None]
  - Paraneoplastic syndrome [None]

NARRATIVE: CASE EVENT DATE: 20220705
